FAERS Safety Report 17693850 (Version 1)
Quarter: 2020Q2

REPORT INFORMATION
  Report Type: Spontaneous
  Country: US (occurrence: US)
  Receive Date: 20200422
  Receipt Date: 20200422
  Transmission Date: 20200714
  Serious: Yes (Other)
  Sender: FDA-Public Use
  Company Number: NVSC2020US107845

PATIENT
  Age: 9 Year
  Sex: Female

DRUGS (1)
  1. PREDNISONE. [Suspect]
     Active Substance: PREDNISONE
     Indication: OSTEOMYELITIS
     Dosage: UNK
     Route: 065

REACTIONS (3)
  - Osteomyelitis [Unknown]
  - Product use in unapproved indication [Unknown]
  - Intraocular pressure increased [Unknown]
